FAERS Safety Report 20848274 (Version 1)
Quarter: 2022Q2

REPORT INFORMATION
  Report Type: Spontaneous
  Country: SE (occurrence: SE)
  Receive Date: 20220519
  Receipt Date: 20220519
  Transmission Date: 20220721
  Serious: Yes (Death, Life-Threatening)
  Sender: FDA-Public Use
  Company Number: None

PATIENT
  Age: 69 Year
  Sex: Male

DRUGS (2)
  1. METHOTREXATE [Suspect]
     Active Substance: METHOTREXATE
     Indication: Rheumatoid arthritis
  2. HUMIRA [Concomitant]
     Active Substance: ADALIMUMAB

REACTIONS (7)
  - Pancytopenia [Fatal]
  - Renal failure [Fatal]
  - Renal disorder [Fatal]
  - Cardiovascular insufficiency [Fatal]
  - Pulmonary oedema [Fatal]
  - Pneumonia pneumococcal [Fatal]
  - Candida sepsis [Fatal]

NARRATIVE: CASE EVENT DATE: 20210101
